FAERS Safety Report 9103590 (Version 2)
Quarter: 2013Q1

REPORT INFORMATION
  Report Type: Spontaneous
  Country: NL (occurrence: NL)
  Receive Date: 20130218
  Receipt Date: 20130308
  Transmission Date: 20140127
  Serious: Yes (Other)
  Sender: FDA-Public Use
  Company Number: NL-GLAXOSMITHKLINE-B0868198A

PATIENT
  Sex: Male
  Weight: 90 kg

DRUGS (3)
  1. WELLBUTRIN [Suspect]
     Indication: PRODUCT USED FOR UNKNOWN INDICATION
     Dosage: 450MG PER DAY
     Route: 065
     Dates: start: 2011, end: 201301
  2. FLUVOXAMINE [Concomitant]
     Indication: ANXIETY DISORDER
     Dosage: 300MG PER DAY
     Dates: start: 2011, end: 2013
  3. ZYPREXA [Concomitant]
     Dosage: 5MG PER DAY

REACTIONS (5)
  - Cognitive disorder [Unknown]
  - Road traffic accident [Unknown]
  - Memory impairment [Unknown]
  - Disturbance in attention [Unknown]
  - Loss of employment [Unknown]
